FAERS Safety Report 5318530-7 (Version None)
Quarter: 2007Q2

REPORT INFORMATION
  Report Type: 
  Country: None (occurrence: None)
  Receive Date: 20070501
  Receipt Date: 20070425
  Transmission Date: 20071010
  Serious: Yes (Disabling)
  Sender: FDA-Public Use
  Company Number: OSCN-PR-0704S-0188

PATIENT
  Age: 72 Year
  Sex: Male

DRUGS (4)
  1. OMNISCAN [Suspect]
     Indication: BRAIN DAMAGE
     Dosage: SINGLE DOSE, I.V.
     Route: 042
     Dates: start: 20060101, end: 20060101
  2. OMNISCAN [Suspect]
     Indication: PNEUMONIA
     Dosage: SINGLE DOSE, I.V.
     Route: 042
     Dates: start: 20060101, end: 20060101
  3. OMNISCAN [Suspect]
     Indication: BRAIN DAMAGE
     Dosage: SINGLE DOSE, I.V.
     Route: 042
     Dates: start: 20060101, end: 20060101
  4. OMNISCAN [Suspect]
     Indication: PNEUMONIA
     Dosage: SINGLE DOSE, I.V.
     Route: 042
     Dates: start: 20060101, end: 20060101

REACTIONS (1)
  - NEPHROGENIC FIBROSING DERMOPATHY [None]
